FAERS Safety Report 11995044 (Version 1)
Quarter: 2016Q1

REPORT INFORMATION
  Report Type: Spontaneous
  Country: US (occurrence: US)
  Receive Date: 20160203
  Receipt Date: 20160203
  Transmission Date: 20160526
  Serious: No
  Sender: FDA-Public Use
  Company Number: US-G+W LABORATORIES-1047253

PATIENT
  Age: 78 Year
  Sex: Female

DRUGS (1)
  1. FLUOCINONIDE. [Suspect]
     Active Substance: FLUOCINONIDE
     Indication: STASIS DERMATITIS
     Route: 061
     Dates: start: 20160118, end: 20160119

REACTIONS (4)
  - Application site oedema [Recovering/Resolving]
  - Application site pruritus [Recovering/Resolving]
  - Off label use [Recovered/Resolved]
  - Application site pain [Recovered/Resolved]

NARRATIVE: CASE EVENT DATE: 201601
